FAERS Safety Report 10946647 (Version 1)
Quarter: 2015Q1

REPORT INFORMATION
  Report Type: Spontaneous
  Country: US (occurrence: None)
  Receive Date: 20150212
  Receipt Date: 20150212
  Transmission Date: 20150721
  Serious: Yes (Other)
  Sender: FDA-Public Use
  Company Number: TPA2011A05048

PATIENT
  Age: 68 Year
  Sex: Female

DRUGS (2)
  1. ULORIC [Suspect]
     Active Substance: FEBUXOSTAT
  2. METHEMAZOL (THYROID THERAPY) [Suspect]
     Active Substance: METHIMAZOLE
     Indication: THYROID DISORDER

REACTIONS (2)
  - Renal failure [None]
  - Drug interaction [None]
